FAERS Safety Report 10281973 (Version 1)
Quarter: 2014Q3

REPORT INFORMATION
  Report Type: Report from Study
  Country: BR (occurrence: BR)
  Receive Date: 20140707
  Receipt Date: 20140707
  Transmission Date: 20150326
  Serious: Yes (Other)
  Sender: FDA-Public Use
  Company Number: PHHY2014BR083413

PATIENT
  Sex: Female
  Weight: 58 kg

DRUGS (6)
  1. REUQUINOL [Concomitant]
     Active Substance: HYDROXYCHLOROQUINE SULFATE
     Indication: RHEUMATIC DISORDER
     Dosage: 1 DF, DAILY
  2. DEPURA [Concomitant]
     Active Substance: CHOLECALCIFEROL
     Dosage: 10 DRP, DAILY
  3. CALCIUM 600 + D [Concomitant]
     Active Substance: CALCIUM\VITAMIN D
     Indication: RHEUMATIC DISORDER
     Dosage: 1 DF, DAILY
  4. ACLASTA [Suspect]
     Active Substance: ZOLEDRONIC ACID
     Indication: OSTEOPOROSIS
     Dosage: UNK UKN, ONCE A YEAR
     Route: 042
     Dates: start: 20130314
  5. METHOTREXATE (METHOTREXATE SODIUM) [Concomitant]
     Active Substance: METHOTREXATE SODIUM
     Indication: RHEUMATIC DISORDER
     Dosage: 8 DF, ONCE A WEEK
  6. PREDNISONE. [Concomitant]
     Active Substance: PREDNISONE
     Indication: RHEUMATIC DISORDER
     Dosage: 1 DF, DAILY

REACTIONS (3)
  - Fall [Recovering/Resolving]
  - Tendon injury [Recovering/Resolving]
  - Pain [Unknown]
